FAERS Safety Report 23849354 (Version 1)
Quarter: 2024Q2

REPORT INFORMATION
  Report Type: Spontaneous
  Country: FR (occurrence: FR)
  Receive Date: 20240513
  Receipt Date: 20240513
  Transmission Date: 20240716
  Serious: Yes (Death, Hospitalization)
  Sender: FDA-Public Use
  Company Number: None

PATIENT
  Age: 71 Year
  Sex: Male
  Weight: 79 kg

DRUGS (15)
  1. PACLITAXEL [Suspect]
     Active Substance: PACLITAXEL
     Indication: Oesophageal neoplasm
     Dates: start: 20240201, end: 20240206
  2. DAPAGLIFLOZIN [Suspect]
     Active Substance: DAPAGLIFLOZIN
     Indication: Cardiac failure
     Dosage: 10 MG, FILM-COATED TABLET
     Dates: start: 20240123, end: 20240207
  3. ARGININE [Suspect]
     Active Substance: ARGININE
     Indication: Parenteral nutrition
     Dates: start: 20240201, end: 20240206
  4. METFORMIN PAMOATE [Suspect]
     Active Substance: METFORMIN PAMOATE
     Indication: Type 2 diabetes mellitus
  5. FENTANYL [Concomitant]
     Active Substance: FENTANYL\FENTANYL CITRATE
  6. PERINDOPRIL [Concomitant]
     Active Substance: PERINDOPRIL
  7. POTASSIUM CHLORIDE [Concomitant]
     Active Substance: POTASSIUM CHLORIDE
  8. PRAVASTATIN SODIUM [Concomitant]
     Active Substance: PRAVASTATIN SODIUM
  9. PANTOPRAZOLE [Concomitant]
     Active Substance: PANTOPRAZOLE
  10. FUROSEMIDE [Concomitant]
     Active Substance: FUROSEMIDE
  11. BISOPROLOL [Concomitant]
     Active Substance: BISOPROLOL\BISOPROLOL FUMARATE
  12. CHOLECALCIFEROL [Concomitant]
     Active Substance: CHOLECALCIFEROL
  13. TAMSULOSIN [Concomitant]
     Active Substance: TAMSULOSIN
  14. KARDEGIC [Concomitant]
     Active Substance: ASPIRIN DL-LYSINE
     Dosage: 75 MG, POWDER FOR ORAL SOLUTION IN SACHET-DOSE
  15. ACETYLLEUCINE, L- [Concomitant]
     Active Substance: ACETYLLEUCINE, L-

REACTIONS (2)
  - Diabetic ketoacidosis [Recovered/Resolved]
  - Sepsis [Fatal]

NARRATIVE: CASE EVENT DATE: 20240206
